FAERS Safety Report 7389226-5 (Version None)
Quarter: 2011Q2

REPORT INFORMATION
  Report Type: 
  Country: None (occurrence: None)
  Receive Date: 20110401
  Receipt Date: 20110330
  Transmission Date: 20111010
  Serious: Yes (Life-Threatening, Hospitalization)
  Sender: FDA-Public Use
  Company Number: JP-SANOFI-AVENTIS-2011SA013234

PATIENT
  Age: 63 Year
  Sex: Female
  Weight: 41.1 kg

DRUGS (6)
  1. DECADRON [Concomitant]
     Indication: HEAD AND NECK CANCER
     Dosage: 66 MG/2 ML
     Route: 041
     Dates: start: 20100730, end: 20100730
  2. TAXOTERE [Suspect]
     Indication: HEAD AND NECK CANCER
     Route: 041
     Dates: start: 20100730, end: 20100730
  3. FLUOROURACIL [Suspect]
     Indication: HEAD AND NECK CANCER
     Dosage: 250 MG/5 ML
     Route: 041
     Dates: start: 20100730, end: 20100802
  4. GRANISETRON HCL [Concomitant]
     Indication: HEAD AND NECK CANCER
     Dosage: 3 MG/100 ML
     Route: 041
     Dates: start: 20100730, end: 20100730
  5. CISPLATIN [Suspect]
     Indication: HEAD AND NECK CANCER
     Dosage: 50 MG/100 ML
     Route: 041
     Dates: start: 20100730, end: 20100730
  6. CISPLATIN [Suspect]
     Dosage: 25 MG/50 ML
     Route: 041
     Dates: start: 20100730, end: 20100730

REACTIONS (8)
  - HYPONATRAEMIA [None]
  - DECREASED APPETITE [None]
  - MALAISE [None]
  - HYPERVENTILATION [None]
  - DIARRHOEA [None]
  - VOMITING [None]
  - INAPPROPRIATE ANTIDIURETIC HORMONE SECRETION [None]
  - SOMNOLENCE [None]
